FAERS Safety Report 5903595-1 (Version None)
Quarter: 2008Q3

REPORT INFORMATION
  Report Type: 
  Country: None (occurrence: None)
  Receive Date: 20080930
  Receipt Date: 20080918
  Transmission Date: 20090109
  Serious: Yes (Other)
  Sender: FDA-Public Use
  Company Number: US-PFIZER INC-2008079231

PATIENT
  Sex: Female

DRUGS (1)
  1. CHANTIX [Suspect]
     Indication: SMOKING CESSATION THERAPY
     Dates: end: 20080909

REACTIONS (4)
  - DEPRESSION [None]
  - EMOTIONAL DISTRESS [None]
  - ILL-DEFINED DISORDER [None]
  - SUICIDAL IDEATION [None]
